FAERS Safety Report 4796845-9 (Version None)
Quarter: 2005Q4

REPORT INFORMATION
  Report Type: 
  Country: None (occurrence: None)
  Receive Date: 20051013
  Receipt Date: 20050922
  Transmission Date: 20060501
  Serious: Yes (Life-Threatening, Hospitalization)
  Sender: FDA-Public Use
  Company Number: AU-SANOFI-SYNTHELABO-A01200506478

PATIENT
  Sex: Male

DRUGS (1)
  1. ELOXATIN [Suspect]
     Route: 042

REACTIONS (1)
  - RESPIRATORY ARREST [None]
